FAERS Safety Report 18401962 (Version 1)
Quarter: 2020Q4

REPORT INFORMATION
  Report Type: Spontaneous
  Country: BE (occurrence: BE)
  Receive Date: 20201019
  Receipt Date: 20201019
  Transmission Date: 20210114
  Serious: Yes (Other)
  Sender: FDA-Public Use
  Company Number: NVSC2020BE278199

PATIENT
  Age: 51 Year
  Sex: Male

DRUGS (4)
  1. CISPLATINE [Suspect]
     Active Substance: CISPLATIN
     Indication: LUNG ADENOCARCINOMA
     Dosage: UNK
     Route: 065
  2. LINEZOLID. [Suspect]
     Active Substance: LINEZOLID
     Indication: LUNG ADENOCARCINOMA
     Dosage: 600 MG, Q12H
     Route: 048
  3. VINORELBINE [Suspect]
     Active Substance: VINORELBINE TARTRATE
     Indication: LUNG ADENOCARCINOMA
     Dosage: UNK
     Route: 065
  4. ATEZOLIZUMAB. [Concomitant]
     Active Substance: ATEZOLIZUMAB
     Indication: LUNG ADENOCARCINOMA
     Dosage: UNK
     Route: 065

REACTIONS (8)
  - Rash maculo-papular [Recovered/Resolved]
  - Protein total abnormal [Unknown]
  - CSF white blood cell count positive [Recovered/Resolved]
  - Generalised tonic-clonic seizure [Recovering/Resolving]
  - Leukopenia [Unknown]
  - Dysuria [Unknown]
  - Pyrexia [Unknown]
  - Thrombocytopenia [Unknown]
